FAERS Safety Report 11276715 (Version 1)
Quarter: 2015Q3

REPORT INFORMATION
  Report Type: Spontaneous
  Country: US (occurrence: None)
  Receive Date: 20150715
  Receipt Date: 20150715
  Transmission Date: 20151125
  Serious: Yes (Disabling)
  Sender: FDA-Public Use
  Company Number: None

PATIENT
  Age: 66 Year
  Sex: Female
  Weight: 62.6 kg

DRUGS (2)
  1. SERTRALINE [Suspect]
     Active Substance: SERTRALINE HYDROCHLORIDE
     Indication: ANXIETY
     Dosage: CUT 1/2 AND 25 MG LATER
     Route: 048
     Dates: start: 20150611, end: 20150711
  2. VALSARTAN. [Concomitant]
     Active Substance: VALSARTAN

REACTIONS (9)
  - Anxiety [None]
  - Diarrhoea [None]
  - Mood altered [None]
  - Decreased appetite [None]
  - Agitation [None]
  - Restlessness [None]
  - Insomnia [None]
  - Depression [None]
  - Depressed mood [None]

NARRATIVE: CASE EVENT DATE: 20150710
